FAERS Safety Report 7712543-3 (Version None)
Quarter: 2011Q3

REPORT INFORMATION
  Report Type: 
  Country: None (occurrence: None)
  Receive Date: 20110826
  Receipt Date: 20110822
  Transmission Date: 20111222
  Serious: Yes (Other)
  Sender: FDA-Public Use
  Company Number: US-TEVA-297564USA

PATIENT

DRUGS (1)
  1. NORDETTE-21 [Suspect]
     Indication: CONTRACEPTION
     Route: 048
     Dates: start: 20110501

REACTIONS (2)
  - BIPOLAR DISORDER [None]
  - ANGER [None]
